FAERS Safety Report 5564739-7 (Version None)
Quarter: 2007Q4

REPORT INFORMATION
  Report Type: 
  Country: None (occurrence: None)
  Receive Date: 20071218
  Receipt Date: 20071206
  Transmission Date: 20080405
  Serious: Yes (Death, Hospitalization)
  Sender: FDA-Public Use
  Company Number: DE-ROCHE-526131

PATIENT
  Age: 67 Year
  Sex: Female
  Weight: 77.5 kg

DRUGS (2)
  1. CAPECITABINE [Suspect]
     Dosage: FREQUENCY REPORTED AS D1-D14 C1
     Route: 048
     Dates: start: 20061212
  2. CISPLATIN [Suspect]
     Dosage: FREQUENCY: D1 C1
     Route: 042
     Dates: start: 20061212

REACTIONS (2)
  - DIARRHOEA [None]
  - LEUKOPENIA [None]
